FAERS Safety Report 11092027 (Version 1)
Quarter: 2015Q2

REPORT INFORMATION
  Report Type: Other
  Country: GB (occurrence: GB)
  Receive Date: 20150505
  Receipt Date: 20150505
  Transmission Date: 20150821
  Serious: Yes (Other)
  Sender: FDA-Public Use
  Company Number: GB-MYLANLABS-2015M1013456

PATIENT

DRUGS (6)
  1. VALSARTAN. [Suspect]
     Active Substance: VALSARTAN
     Dosage: UNK
  2. FELODIPINE. [Concomitant]
     Active Substance: FELODIPINE
     Indication: ANGINA PECTORIS
     Dosage: UNK
     Dates: start: 20150129
  3. NOVORAPID [Concomitant]
     Active Substance: INSULIN ASPART
     Dosage: LONG TERM MEDICATION
  4. OMEPRAZOLE. [Concomitant]
     Active Substance: OMEPRAZOLE
     Dosage: 200 MG, UNK (TAKING FOR YEARS)
     Route: 048
  5. ESMYA [Interacting]
     Active Substance: ULIPRISTAL ACETATE
     Indication: UTERINE LEIOMYOMA
     Dosage: 5 MG, UNK
     Route: 048
     Dates: start: 20150121, end: 20150129
  6. LANTUS [Concomitant]
     Active Substance: INSULIN GLARGINE
     Dosage: LONG TERM MEDICATION

REACTIONS (2)
  - Drug interaction [Unknown]
  - Blood pressure increased [Recovered/Resolved]

NARRATIVE: CASE EVENT DATE: 20150128
